FAERS Safety Report 4775944-1 (Version None)
Quarter: 2005Q3

REPORT INFORMATION
  Report Type: 
  Country: None (occurrence: None)
  Receive Date: 20050922
  Receipt Date: 20050804
  Transmission Date: 20060218
  Serious: Yes (Hospitalization)
  Sender: FDA-Public Use
  Company Number: J200502563

PATIENT
  Age: 6 Year
  Sex: Female

DRUGS (3)
  1. SAWACILLIN [Suspect]
     Route: 048
     Dates: start: 20050710, end: 20050714
  2. CEFCAPENE PIVOXIL HYDROCHLORIDE [Suspect]
     Dosage: 50MG THREE TIMES PER DAY
     Route: 048
     Dates: start: 20050717, end: 20050719
  3. SUPPOSITORY [Concomitant]

REACTIONS (4)
  - PIGMENTATION DISORDER [None]
  - PYREXIA [None]
  - RASH [None]
  - RASH GENERALISED [None]
